FAERS Safety Report 14301246 (Version 3)
Quarter: 2018Q2

REPORT INFORMATION
  Report Type: Spontaneous
  Country: GB (occurrence: GB)
  Receive Date: 20171219
  Receipt Date: 20180626
  Transmission Date: 20180711
  Serious: Yes (Death, Other)
  Sender: FDA-Public Use
  Company Number: GB-AUROBINDO-AUR-APL-2017-46025

PATIENT
  Age: 29 Year
  Sex: Female

DRUGS (3)
  1. DIAZEPAM. [Suspect]
     Active Substance: DIAZEPAM
     Indication: PRODUCT USED FOR UNKNOWN INDICATION
     Dosage: UNK ()
     Route: 065
  2. PREGABALIN. [Suspect]
     Active Substance: PREGABALIN
     Indication: PRODUCT USED FOR UNKNOWN INDICATION
     Dosage: UNK ()
     Route: 065
  3. SERTRALINE [Suspect]
     Active Substance: SERTRALINE HYDROCHLORIDE
     Indication: PRODUCT USED FOR UNKNOWN INDICATION
     Dosage: UNK ()
     Route: 065

REACTIONS (8)
  - Sudden death [Fatal]
  - Suicidal behaviour [Fatal]
  - Borderline personality disorder [Fatal]
  - Somnolence [Fatal]
  - Mental impairment [Fatal]
  - Mental disorder [Unknown]
  - Hallucination, auditory [Fatal]
  - Hypersomnia [Fatal]

NARRATIVE: CASE EVENT DATE: 20170917
